FAERS Safety Report 22883859 (Version 2)
Quarter: 2023Q4

REPORT INFORMATION
  Report Type: Spontaneous
  Country: CH (occurrence: CH)
  Receive Date: 20230830
  Receipt Date: 20231206
  Transmission Date: 20240110
  Serious: Yes (Hospitalization)
  Sender: FDA-Public Use
  Company Number: CH-Accord-374818

PATIENT
  Age: 5 Day
  Weight: 3.1 kg

DRUGS (2)
  1. DEXMEDETOMIDINE HYDROCHLORIDE [Suspect]
     Active Substance: DEXMEDETOMIDINE HYDROCHLORIDE
     Indication: Local anaesthesia
     Dosage: 4 MCG?DISTRIBUTED OVER FOUR INJECTION SITES
  2. ROPIVACAINE [Suspect]
     Active Substance: ROPIVACAINE
     Indication: Local anaesthesia
     Dosage: 0.375%

REACTIONS (3)
  - Vasoconstriction [Recovered/Resolved]
  - Skin lesion [Recovered/Resolved]
  - Injection site erythema [Unknown]
